FAERS Safety Report 7302231-X (Version None)
Quarter: 2011Q1

REPORT INFORMATION
  Report Type: 
  Country: None (occurrence: None)
  Receive Date: 20110218
  Receipt Date: 20110215
  Transmission Date: 20110831
  Serious: Yes (Death, Other)
  Sender: FDA-Public Use
  Company Number: PHHY2011US12535

PATIENT
  Sex: Male

DRUGS (2)
  1. ZOMETA [Suspect]
     Indication: SMALL CELL CARCINOMA
     Route: 042
  2. ZOMETA [Suspect]
     Dosage: UNK
     Route: 042
     Dates: start: 20110113

REACTIONS (4)
  - SMALL CELL CARCINOMA [None]
  - HAEMORRHAGE [None]
  - NEOPLASM MALIGNANT [None]
  - HAEMATEMESIS [None]
